FAERS Safety Report 20576929 (Version 3)
Quarter: 2022Q3

REPORT INFORMATION
  Report Type: Spontaneous
  Country: JP (occurrence: JP)
  Receive Date: 20220310
  Receipt Date: 20220714
  Transmission Date: 20221027
  Serious: No
  Sender: FDA-Public Use
  Company Number: JP-GSKNCCC-Case-01439672_AE-55653

PATIENT

DRUGS (4)
  1. SOTROVIMAB [Suspect]
     Active Substance: SOTROVIMAB
     Indication: COVID-19
     Dosage: 500 MG/50 ML/30 MIN
     Dates: start: 20220306, end: 20220306
  2. ALLEGRA TABLETS [Concomitant]
     Indication: Prophylaxis
     Dosage: 60 MG, SINGLE
     Dates: start: 20220306
  3. FEXOFENADINE HYDROCHLORIDE [Concomitant]
     Active Substance: FEXOFENADINE HYDROCHLORIDE
     Indication: Nasal congestion
     Dosage: UNK
  4. FEXOFENADINE HYDROCHLORIDE [Concomitant]
     Active Substance: FEXOFENADINE HYDROCHLORIDE
     Dosage: 1 DF,AFTER BREAKFAST
     Dates: start: 20220307

REACTIONS (8)
  - Lymphadenopathy [Recovering/Resolving]
  - Swelling [Recovering/Resolving]
  - Discomfort [Recovering/Resolving]
  - Ocular hyperaemia [Recovering/Resolving]
  - Eyelid oedema [Recovering/Resolving]
  - Feeling hot [Recovered/Resolved]
  - Swelling of eyelid [Recovering/Resolving]
  - Stomatitis [Unknown]

NARRATIVE: CASE EVENT DATE: 20220306
